FAERS Safety Report 15009402 (Version 2)
Quarter: 2020Q1

REPORT INFORMATION
  Report Type: Spontaneous
  Country: CH (occurrence: CH)
  Receive Date: 20180614
  Receipt Date: 20200131
  Transmission Date: 20200409
  Serious: Yes (Hospitalization)
  Sender: FDA-Public Use
  Company Number: CH-TEVA-2018-CH-908315

PATIENT
  Age: 16 Year
  Sex: Female

DRUGS (13)
  1. CO-AMOXI [Suspect]
     Active Substance: AMOXICILLIN\CLAVULANATE POTASSIUM
     Dosage: 8 GRAM DAILY;
     Route: 041
     Dates: start: 20180530, end: 20180611
  2. CLAMOXYL [AMOXICILLIN] [Suspect]
     Active Substance: AMOXICILLIN
     Dosage: 1000 MILLIGRAM DAILY;
     Route: 041
     Dates: start: 20180527, end: 20180530
  3. NEXIUM [Suspect]
     Active Substance: ESOMEPRAZOLE MAGNESIUM
     Dosage: 40 MILLIGRAM DAILY;
     Route: 048
     Dates: start: 20180524, end: 20180526
  4. ASPIRIN CARDIO [Suspect]
     Active Substance: ASPIRIN
     Dosage: 100 MILLIGRAM DAILY;
     Route: 048
     Dates: start: 20180515, end: 20180526
  5. ASPIRIN CARDIO [Suspect]
     Active Substance: ASPIRIN
     Dosage: 100 MILLIGRAM DAILY;
     Route: 048
     Dates: start: 20180604, end: 20180611
  6. CO-AMOXI [Suspect]
     Active Substance: AMOXICILLIN\CLAVULANATE POTASSIUM
     Dosage: 4 GRAM DAILY;
     Route: 041
     Dates: start: 20180527, end: 20180530
  7. CO-AMOXI [Suspect]
     Active Substance: AMOXICILLIN\CLAVULANATE POTASSIUM
     Indication: ENDOCARDITIS
     Dosage: 9 GRAM DAILY;
     Route: 041
     Dates: start: 20180508, end: 20180526
  8. CLAMOXYL [AMOXICILLIN] [Suspect]
     Active Substance: AMOXICILLIN
     Indication: ENDOCARDITIS
     Dosage: 1000 MILLIGRAM DAILY;
     Route: 041
     Dates: start: 20180508, end: 20180527
  9. CO-AMOXI [Suspect]
     Active Substance: AMOXICILLIN\CLAVULANATE POTASSIUM
     Dosage: 6.6 GRAM DAILY;
     Route: 041
     Dates: start: 20180526, end: 20180527
  10. GENTAMICIN. [Suspect]
     Active Substance: GENTAMICIN
     Indication: ENDOCARDITIS
     Route: 041
     Dates: start: 20180508, end: 20180509
  11. TEMESTA [Concomitant]
     Route: 065
  12. DAFALGAN [Concomitant]
     Active Substance: ACETAMINOPHEN
     Route: 065
  13. CLEXANE [Concomitant]
     Active Substance: ENOXAPARIN SODIUM
     Route: 065

REACTIONS (2)
  - Tubulointerstitial nephritis [Recovered/Resolved]
  - Renal failure [Recovered/Resolved]

NARRATIVE: CASE EVENT DATE: 20180509
